FAERS Safety Report 5515940-X (Version None)
Quarter: 2007Q4

REPORT INFORMATION
  Report Type: 
  Country: None (occurrence: None)
  Receive Date: 20071109
  Receipt Date: 20071105
  Transmission Date: 20080405
  Serious: Yes (Hospitalization)
  Sender: FDA-Public Use
  Company Number: 2007SP018261

PATIENT
  Age: 5 Month
  Sex: Female
  Weight: 6.85 kg

DRUGS (2)
  1. BETAMETHASONE [Suspect]
     Indication: BRONCHIOLITIS
  2. ANTIBIOTIC [Concomitant]

REACTIONS (4)
  - DRUG INEFFECTIVE [None]
  - HYPOTHERMIA [None]
  - INFECTION [None]
  - LOCAL SWELLING [None]
